FAERS Safety Report 18207312 (Version 1)
Quarter: 2020Q3

REPORT INFORMATION
  Report Type: Spontaneous
  Country: US (occurrence: US)
  Receive Date: 20200828
  Receipt Date: 20200828
  Transmission Date: 20201103
  Serious: No
  Sender: FDA-Public Use
  Company Number: US-PFIZER INC-2019265066

PATIENT
  Age: 80 Year
  Sex: Female
  Weight: 64.86 kg

DRUGS (4)
  1. LYRICA [Suspect]
     Active Substance: PREGABALIN
     Indication: BURNING SENSATION
     Dosage: 200 MG, 2X/DAY
     Route: 048
  2. LYRICA [Suspect]
     Active Substance: PREGABALIN
     Dosage: 200 MG, 2X/DAY
  3. ALEVE [Concomitant]
     Active Substance: NAPROXEN SODIUM
     Dosage: 220 MG, 1X/DAY [ONE AT NIGHT BY MOUTH]
     Route: 048
  4. LYRICA [Suspect]
     Active Substance: PREGABALIN
     Dosage: 200 MG, 1X/DAY (MORNING ONLY)

REACTIONS (4)
  - Dry mouth [Unknown]
  - Corrective lens user [Unknown]
  - Body height decreased [Unknown]
  - Intentional product misuse [Unknown]
